FAERS Safety Report 8649937 (Version 6)
Quarter: 2013Q3

REPORT INFORMATION
  Report Type: Spontaneous
  Country: JP (occurrence: JP)
  Receive Date: 20120705
  Receipt Date: 20130803
  Transmission Date: 20140515
  Serious: Yes (Death, Hospitalization, Other)
  Sender: FDA-Public Use
  Company Number: JP-B.I. PHARMACEUTICALS,INC./RIDGEFIELD-2012-BP-14559NB

PATIENT
  Age: 78 Year
  Sex: Male

DRUGS (3)
  1. PRAZAXA [Suspect]
     Indication: ATRIAL FIBRILLATION
     Dosage: 300 MG
     Route: 048
  2. UFT [Suspect]
     Indication: LUNG NEOPLASM MALIGNANT
     Route: 065
  3. ALLOPURINOL [Suspect]
     Indication: GOUT
     Route: 065

REACTIONS (3)
  - Interstitial lung disease [Fatal]
  - Cerebral infarction [Unknown]
  - Pneumonia bacterial [Unknown]
